FAERS Safety Report 8345738-9 (Version None)
Quarter: 2012Q2

REPORT INFORMATION
  Report Type: 
  Country: None (occurrence: None)
  Receive Date: 20120508
  Receipt Date: 20120425
  Transmission Date: 20120825
  Serious: Yes (Hospitalization, Other)
  Sender: FDA-Public Use
  Company Number: US-ELI_LILLY_AND_COMPANY-US201204010074

PATIENT
  Sex: Female

DRUGS (11)
  1. POTASSIUM CHLORIDE [Concomitant]
  2. EYE DROPS [Concomitant]
  3. PERCOCET [Concomitant]
  4. METOPROLOL TARTRATE [Concomitant]
  5. SIMVASTATIN [Concomitant]
  6. CLONAZEPAM [Concomitant]
  7. FUROSEMIDE [Concomitant]
  8. FORTEO [Suspect]
     Dosage: 20 UG, QD
  9. PRILOSEC [Concomitant]
  10. CIPROFLOXACIN HCL [Concomitant]
  11. FORTEO [Suspect]
     Indication: OSTEOPOROSIS
     Dosage: 20 UG, QD

REACTIONS (4)
  - ASTHENIA [None]
  - BILE DUCT OBSTRUCTION [None]
  - HEPATIC INFECTION [None]
  - POST PROCEDURAL COMPLICATION [None]
